FAERS Safety Report 8348911-9 (Version None)
Quarter: 2012Q2

REPORT INFORMATION
  Report Type: 
  Country: None (occurrence: None)
  Receive Date: 20120510
  Receipt Date: 20120503
  Transmission Date: 20120825
  Serious: Yes (Hospitalization)
  Sender: FDA-Public Use
  Company Number: US-BAYER-2012-043580

PATIENT
  Age: 27 Year
  Sex: Female

DRUGS (1)
  1. MIRENA [Suspect]
     Indication: CONTRACEPTION
     Dosage: 20 ?G/D, CONT
     Route: 015
     Dates: start: 20090429, end: 20120101

REACTIONS (4)
  - HAEMORRHAGIC OVARIAN CYST [None]
  - ENDOMETRIOSIS [None]
  - PELVIC PAIN [None]
  - PROCEDURAL PAIN [None]
